FAERS Safety Report 7234194-X (Version None)
Quarter: 2011Q1

REPORT INFORMATION
  Report Type: 
  Country: None (occurrence: None)
  Receive Date: 20110119
  Receipt Date: 20110110
  Transmission Date: 20110831
  Serious: Yes (Other)
  Sender: FDA-Public Use
  Company Number: DE-GENZYME-POMP-1001283

PATIENT
  Sex: Female
  Weight: 54 kg

DRUGS (1)
  1. MYOZYME [Suspect]
     Indication: GLYCOGEN STORAGE DISEASE TYPE II
     Dosage: 19.5 MG/KG, UNK
     Route: 042
     Dates: start: 20061201

REACTIONS (1)
  - BREAST CANCER [None]
